FAERS Safety Report 9701433 (Version 2)
Quarter: 2013Q4

REPORT INFORMATION
  Report Type: Spontaneous
  Country: US (occurrence: US)
  Receive Date: 20131121
  Receipt Date: 20131121
  Transmission Date: 20140711
  Serious: No
  Sender: FDA-Public Use
  Company Number: US-GILEAD-2008-0016306

PATIENT
  Age: 69 Year
  Sex: Female
  Weight: 124.28 kg

DRUGS (19)
  1. LETAIRIS [Suspect]
     Indication: PULMONARY HYPERTENSION
     Route: 048
     Dates: start: 20080331
  2. OXYGEN [Concomitant]
     Dosage: CONTINUOUS
     Route: 055
  3. BUMEX [Concomitant]
     Route: 048
  4. JANUVIA [Concomitant]
     Route: 048
  5. COREG [Concomitant]
     Route: 048
  6. TYLENOL EX-STR [Concomitant]
     Route: 048
  7. NORVASC [Concomitant]
     Route: 048
  8. TRICOR [Concomitant]
     Route: 048
  9. SYNTHROID [Concomitant]
     Route: 048
  10. AVAPRO [Concomitant]
     Route: 048
  11. TUMS CALCIUM [Concomitant]
     Route: 048
  12. GLIPIZIDE [Concomitant]
     Route: 048
  13. ALLOPURINOL [Concomitant]
     Route: 048
  14. MULTIVITAMINS [Concomitant]
     Route: 048
  15. FISH OIL [Concomitant]
     Route: 048
  16. ASPIRIN [Concomitant]
     Route: 048
  17. PLAVIX [Concomitant]
     Route: 048
  18. NITROSTAT [Concomitant]
     Route: 048
  19. PANTOPRAZOLE [Concomitant]
     Route: 048

REACTIONS (5)
  - Oropharyngeal pain [Not Recovered/Not Resolved]
  - Dyspnoea [Not Recovered/Not Resolved]
  - Oedema peripheral [Not Recovered/Not Resolved]
  - Flushing [Not Recovered/Not Resolved]
  - Headache [Recovered/Resolved]
